FAERS Safety Report 8401408-X (Version None)
Quarter: 2012Q2

REPORT INFORMATION
  Report Type: 
  Country: None (occurrence: None)
  Receive Date: 20120601
  Receipt Date: 20120529
  Transmission Date: 20120825
  Serious: Yes (Hospitalization, Other)
  Sender: FDA-Public Use
  Company Number: PHHO2010ZA15903

PATIENT
  Sex: Male
  Weight: 66 kg

DRUGS (15)
  1. TASIGNA [Suspect]
     Dosage: 400 MG, QD
  2. MORPHINE [Suspect]
     Dosage: UNK
  3. ZAFOR [Suspect]
     Indication: NAUSEA
     Dosage: 400 MG, PRN
     Route: 048
     Dates: start: 20101017, end: 20101026
  4. SUCRALFATE [Concomitant]
     Indication: DYSPEPSIA
     Dosage: UNK
  5. RABEPRAZOLE SODIUM [Concomitant]
     Indication: DYSPEPSIA
     Dosage: UNK
  6. TASIGNA [Suspect]
     Dosage: 400 MG, BID
     Route: 048
     Dates: end: 20101101
  7. TASIGNA [Suspect]
     Indication: GASTROINTESTINAL STROMAL TUMOUR
     Dosage: 400 MG, BID
     Route: 048
     Dates: start: 20101013, end: 20101014
  8. IMATINIB MESYLATE [Suspect]
     Dosage: 400 MG, DAILY
     Route: 048
     Dates: start: 20110421, end: 20111102
  9. IRON SUPPLEMENTS [Concomitant]
     Dosage: UNK
  10. TASIGNA [Suspect]
     Dosage: 400 MG, QD
     Route: 048
     Dates: start: 20101119, end: 20110411
  11. LENTOGESIC [Suspect]
     Indication: PAIN
     Dosage: UNK
     Route: 048
     Dates: start: 20101012, end: 20101026
  12. OMEPRAZOLE [Concomitant]
     Indication: DYSPEPSIA
     Dosage: 20 MG, QD
     Dates: start: 20101026
  13. IMATINIB MESYLATE [Suspect]
     Indication: GASTROINTESTINAL STROMAL TUMOUR
     Dosage: 400 MG, QD
     Route: 048
     Dates: start: 20110416, end: 20110417
  14. DURAGESIC-100 [Suspect]
     Dosage: UNK
  15. CALCIUM [Concomitant]
     Dosage: UNK

REACTIONS (8)
  - VOMITING [None]
  - CONSTIPATION [None]
  - ABDOMINAL PAIN [None]
  - NEOPLASM MALIGNANT [None]
  - INTESTINAL OBSTRUCTION [None]
  - PYREXIA [None]
  - NAUSEA [None]
  - HYPOPHAGIA [None]
